FAERS Safety Report 8384322-8 (Version None)
Quarter: 2012Q2

REPORT INFORMATION
  Report Type: 
  Country: None (occurrence: None)
  Receive Date: 20120524
  Receipt Date: 20120516
  Transmission Date: 20120825
  Serious: Yes (Hospitalization, Other)
  Sender: FDA-Public Use
  Company Number: JP-VERTEX PHARMACEUTICALS INC.-AE-2012-004787

PATIENT
  Age: 60 Year
  Sex: Female

DRUGS (12)
  1. TELAVIC (TELAPREVIR) [Suspect]
     Route: 048
     Dates: start: 20120210, end: 20120328
  2. URSO 250 [Concomitant]
     Route: 048
     Dates: start: 20120411
  3. PEGINTERFERON ALFA-2A [Concomitant]
     Route: 051
     Dates: start: 20120222, end: 20120313
  4. LIVACT [Concomitant]
     Route: 048
  5. LASIX [Concomitant]
     Route: 048
  6. TELAVIC (TELAPREVIR) [Suspect]
     Indication: HEPATITIS C
     Route: 048
     Dates: start: 20120201, end: 20120209
  7. PEGINTERFERON ALFA-2A [Concomitant]
     Indication: HEPATITIS C
     Route: 051
     Dates: start: 20120201, end: 20120207
  8. PEGINTERFERON ALFA-2A [Concomitant]
     Route: 051
     Dates: start: 20120208, end: 20120221
  9. ALDACTONE [Concomitant]
     Route: 048
  10. REBETOL [Concomitant]
     Indication: HEPATITIS C
     Route: 048
     Dates: start: 20120201, end: 20120328
  11. PEGINTERFERON ALFA-2A [Concomitant]
     Route: 051
     Dates: start: 20120314
  12. TAURINE [Concomitant]
     Route: 048

REACTIONS (2)
  - PLATELET COUNT DECREASED [None]
  - RASH [None]
